FAERS Safety Report 18638308 (Version 2)
Quarter: 2021Q1

REPORT INFORMATION
  Report Type: Spontaneous
  Country: US (occurrence: US)
  Receive Date: 20201219
  Receipt Date: 20210112
  Transmission Date: 20210419
  Serious: Yes (Hospitalization)
  Sender: FDA-Public Use
  Company Number: US-009507513-2012USA007985

PATIENT
  Sex: Female

DRUGS (2)
  1. KEYTRUDA [Suspect]
     Active Substance: PEMBROLIZUMAB
     Indication: MICROSATELLITE INSTABILITY CANCER
  2. KEYTRUDA [Suspect]
     Active Substance: PEMBROLIZUMAB
     Indication: ENDOMETRIAL CANCER
     Dosage: EVERY THREE WEEKS
     Dates: start: 201803, end: 202008

REACTIONS (14)
  - Tension [Unknown]
  - Blood disorder [Unknown]
  - Hypersensitivity [Unknown]
  - Adverse event [Unknown]
  - Pain in extremity [Unknown]
  - Platelet count decreased [Unknown]
  - Illness [Unknown]
  - Tryptase increased [Unknown]
  - Asthenia [Unknown]
  - Illness [Recovered/Resolved]
  - Histamine abnormal [Unknown]
  - Adverse drug reaction [Unknown]
  - Eating disorder [Unknown]
  - Pain [Unknown]

NARRATIVE: CASE EVENT DATE: 2020
